FAERS Safety Report 4473415-3 (Version None)
Quarter: 2004Q3

REPORT INFORMATION
  Report Type: 
  Country: None (occurrence: None)
  Receive Date: 20040920
  Receipt Date: 20031008
  Transmission Date: 20050211
  Serious: Yes (Hospitalization)
  Sender: FDA-Public Use
  Company Number: S03-USA-04219-01

PATIENT
  Age: 64 Year
  Sex: Female

DRUGS (1)
  1. CELEXA [Suspect]
     Dosage: 20 MG QD PO
     Route: 048
     Dates: start: 20030921, end: 20031007

REACTIONS (1)
  - HYPONATRAEMIA [None]
